FAERS Safety Report 23681863 (Version 1)
Quarter: 2024Q1

REPORT INFORMATION
  Report Type: Report from Study
  Country: CN (occurrence: CN)
  Receive Date: 20240328
  Receipt Date: 20240328
  Transmission Date: 20240409
  Serious: Yes (Life-Threatening)
  Sender: FDA-Public Use
  Company Number: CN-JNJFOC-20240350394

PATIENT
  Age: 60 Year
  Sex: Female
  Weight: 54.2 kg

DRUGS (56)
  1. DARZALEX FASPRO [Suspect]
     Active Substance: DARATUMUMAB\HYALURONIDASE-FIHJ
     Indication: Plasma cell myeloma
     Route: 058
     Dates: start: 20230707, end: 20230810
  2. ELRANATAMAB [Suspect]
     Active Substance: ELRANATAMAB
     Indication: Plasma cell myeloma
     Dosage: FIRST REGIMEN
     Route: 058
     Dates: start: 20230615, end: 20230615
  3. ELRANATAMAB [Suspect]
     Active Substance: ELRANATAMAB
     Dosage: SECOND REGIMEN
     Route: 058
     Dates: start: 20230619, end: 20230619
  4. ELRANATAMAB [Suspect]
     Active Substance: ELRANATAMAB
     Dosage: THIRD REGIMEN
     Route: 058
     Dates: start: 20230625, end: 20231122
  5. ELRANATAMAB [Suspect]
     Active Substance: ELRANATAMAB
     Dosage: FOURTH REGIMEN
     Route: 058
     Dates: start: 20231129, end: 20231213
  6. GANCICLOVIR [Concomitant]
     Active Substance: GANCICLOVIR
     Indication: Product used for unknown indication
     Route: 041
     Dates: start: 20231214, end: 20231220
  7. GANCICLOVIR [Concomitant]
     Active Substance: GANCICLOVIR
     Route: 041
     Dates: start: 20231221, end: 20240102
  8. GANCICLOVIR [Concomitant]
     Active Substance: GANCICLOVIR
     Route: 041
     Dates: start: 20240131, end: 20240212
  9. GANCICLOVIR [Concomitant]
     Active Substance: GANCICLOVIR
     Route: 041
     Dates: start: 20240218, end: 20240219
  10. GANCICLOVIR [Concomitant]
     Active Substance: GANCICLOVIR
     Route: 041
     Dates: start: 20240220, end: 20240223
  11. INOSINE [Concomitant]
     Active Substance: INOSINE
     Indication: Product used for unknown indication
     Route: 041
     Dates: start: 20231214, end: 20231220
  12. IBUPROFEN [Concomitant]
     Active Substance: IBUPROFEN
     Indication: Product used for unknown indication
     Route: 048
     Dates: start: 20231219, end: 20231220
  13. IBUPROFEN [Concomitant]
     Active Substance: IBUPROFEN
     Route: 048
     Dates: start: 20240131
  14. IBUPROFEN [Concomitant]
     Active Substance: IBUPROFEN
     Route: 048
     Dates: start: 20240210, end: 20240211
  15. IBUPROFEN [Concomitant]
     Active Substance: IBUPROFEN
     Route: 048
     Dates: start: 20240213
  16. CELECOXIB [Concomitant]
     Active Substance: CELECOXIB
     Indication: Product used for unknown indication
     Route: 048
     Dates: start: 20231222, end: 20240104
  17. PENICILLIN G [Concomitant]
     Active Substance: PENICILLIN G
     Indication: Product used for unknown indication
     Dosage: 1.6 MILLION UNITS?SKIN TEST ON 21-DEC-2023
     Route: 065
  18. VALGANCICLOVIR HYDROCHLORIDE [Concomitant]
     Active Substance: VALGANCICLOVIR HYDROCHLORIDE
     Indication: Product used for unknown indication
     Route: 048
     Dates: start: 20240103
  19. PIPERACILLIN AND TAZOBACTAM [Concomitant]
     Active Substance: PIPERACILLIN SODIUM\TAZOBACTAM SODIUM
     Indication: Product used for unknown indication
     Route: 041
     Dates: start: 20231221, end: 20231225
  20. CILASTATIN SODIUM\IMIPENEM [Concomitant]
     Active Substance: CILASTATIN SODIUM\IMIPENEM
     Indication: Product used for unknown indication
     Route: 041
     Dates: start: 20231225, end: 20231228
  21. VANCOMYCIN HYDROCHLORIDE [Concomitant]
     Active Substance: VANCOMYCIN HYDROCHLORIDE
     Indication: Product used for unknown indication
     Route: 041
     Dates: start: 20231226
  22. CEFUROXIME AXETIL [Concomitant]
     Active Substance: CEFUROXIME AXETIL
     Indication: Product used for unknown indication
     Route: 041
     Dates: start: 20231228, end: 20231229
  23. LINEZOLID [Concomitant]
     Active Substance: LINEZOLID
     Indication: Product used for unknown indication
     Route: 041
     Dates: start: 20240103, end: 20240112
  24. LINEZOLID [Concomitant]
     Active Substance: LINEZOLID
     Route: 041
     Dates: start: 20240111, end: 20240118
  25. LINEZOLID [Concomitant]
     Active Substance: LINEZOLID
     Route: 041
     Dates: start: 20240220, end: 20240223
  26. TIGECYCLINE [Concomitant]
     Active Substance: TIGECYCLINE
     Indication: Product used for unknown indication
     Route: 041
     Dates: start: 20240103, end: 20240105
  27. TIGECYCLINE [Concomitant]
     Active Substance: TIGECYCLINE
     Route: 041
     Dates: start: 20240106, end: 20240111
  28. TIGECYCLINE [Concomitant]
     Active Substance: TIGECYCLINE
     Route: 041
     Dates: start: 20240111, end: 20240118
  29. TIGECYCLINE [Concomitant]
     Active Substance: TIGECYCLINE
     Route: 041
     Dates: start: 20240206
  30. TIGECYCLINE [Concomitant]
     Active Substance: TIGECYCLINE
     Route: 041
     Dates: start: 20240206, end: 20240220
  31. TIGECYCLINE [Concomitant]
     Active Substance: TIGECYCLINE
     Route: 041
     Dates: start: 20240220, end: 20240223
  32. AMBROXOL HYDROCHLORIDE [Concomitant]
     Active Substance: AMBROXOL HYDROCHLORIDE
     Indication: Product used for unknown indication
     Route: 041
     Dates: start: 20240105, end: 20240111
  33. AMBROXOL HYDROCHLORIDE [Concomitant]
     Active Substance: AMBROXOL HYDROCHLORIDE
     Route: 041
     Dates: start: 20240210, end: 20240219
  34. AMBROXOL HYDROCHLORIDE [Concomitant]
     Active Substance: AMBROXOL HYDROCHLORIDE
     Dosage: ATOMIZED INHALATION
     Route: 065
     Dates: start: 20240214, end: 20240219
  35. AMBROXOL HYDROCHLORIDE [Concomitant]
     Active Substance: AMBROXOL HYDROCHLORIDE
     Route: 041
     Dates: start: 20240220, end: 20240222
  36. AMBROXOL HYDROCHLORIDE [Concomitant]
     Active Substance: AMBROXOL HYDROCHLORIDE
     Dosage: ATOMIZED INHALATION
     Route: 065
     Dates: start: 20240220, end: 20240221
  37. AMBROXOL HYDROCHLORIDE [Concomitant]
     Active Substance: AMBROXOL HYDROCHLORIDE
     Dosage: ATOMIZED INHALATION
     Route: 065
     Dates: start: 20240221, end: 20240306
  38. AMBROXOL HYDROCHLORIDE [Concomitant]
     Active Substance: AMBROXOL HYDROCHLORIDE
     Route: 041
     Dates: start: 20240222, end: 20240223
  39. AMBROXOL HYDROCHLORIDE [Concomitant]
     Active Substance: AMBROXOL HYDROCHLORIDE
     Route: 041
     Dates: start: 20240224, end: 20240306
  40. METRONIDAZOLE;SODIUM CHLORIDE [Concomitant]
     Indication: Product used for unknown indication
     Dosage: WITH GARGLE
     Route: 065
     Dates: start: 20240111, end: 20240118
  41. METRONIDAZOLE;SODIUM CHLORIDE [Concomitant]
     Dosage: WITH GARGLE
     Route: 065
     Dates: start: 20240202, end: 20240219
  42. MEROPENEM [Concomitant]
     Active Substance: MEROPENEM
     Indication: Product used for unknown indication
     Route: 041
     Dates: start: 20240131
  43. MEROPENEM [Concomitant]
     Active Substance: MEROPENEM
     Route: 041
     Dates: start: 20240201, end: 20240206
  44. NYSTATIN [Concomitant]
     Active Substance: NYSTATIN
     Indication: Product used for unknown indication
     Dosage: WITH GARGLE
     Route: 065
     Dates: start: 20240202, end: 20240219
  45. VORICONAZOLE [Concomitant]
     Active Substance: VORICONAZOLE
     Indication: Product used for unknown indication
     Route: 041
     Dates: start: 20240202
  46. VORICONAZOLE [Concomitant]
     Active Substance: VORICONAZOLE
     Route: 041
     Dates: start: 20240203, end: 20240220
  47. ACETYLCYSTEINE [Concomitant]
     Active Substance: ACETYLCYSTEINE
     Indication: Product used for unknown indication
     Dosage: ATOMIZED INHALATION
     Route: 065
     Dates: start: 20240204, end: 20240214
  48. CEFOPERAZONE SODIUM\SULBACTAM SODIUM [Concomitant]
     Active Substance: CEFOPERAZONE SODIUM\SULBACTAM SODIUM
     Indication: Product used for unknown indication
     Route: 041
     Dates: start: 20240206, end: 20240211
  49. POLYMYXIN B SULFATE [Concomitant]
     Active Substance: POLYMYXIN B SULFATE
     Indication: Product used for unknown indication
     Dosage: 780000 IU
     Route: 041
     Dates: start: 20240212, end: 20240220
  50. POLYMYXIN B SULFATE [Concomitant]
     Active Substance: POLYMYXIN B SULFATE
     Dosage: 1.3 MILLION IU
     Route: 041
     Dates: start: 20240211
  51. SODIUM CHLORIDE [Concomitant]
     Active Substance: SODIUM CHLORIDE
     Indication: Product used for unknown indication
     Route: 041
     Dates: start: 20240202, end: 20240219
  52. CASPOFUNGIN ACETATE [Concomitant]
     Active Substance: CASPOFUNGIN ACETATE
     Indication: Product used for unknown indication
     Route: 041
     Dates: start: 20240220
  53. CASPOFUNGIN ACETATE [Concomitant]
     Active Substance: CASPOFUNGIN ACETATE
     Route: 041
     Dates: start: 20240221, end: 20240223
  54. TEICOPLANIN [Concomitant]
     Active Substance: TEICOPLANIN
     Indication: Product used for unknown indication
     Route: 041
     Dates: start: 20231227, end: 20231229
  55. TEICOPLANIN [Concomitant]
     Active Substance: TEICOPLANIN
     Route: 041
     Dates: start: 20240101, end: 20240103
  56. TEICOPLANIN [Concomitant]
     Active Substance: TEICOPLANIN
     Route: 041
     Dates: start: 20240223, end: 20240313

REACTIONS (2)
  - Blood fibrinogen decreased [Recovered/Resolved]
  - Platelet count decreased [Recovered/Resolved]

NARRATIVE: CASE EVENT DATE: 20240221
